FAERS Safety Report 9346362 (Version 1)
Quarter: 2013Q2

REPORT INFORMATION
  Report Type: Report from Study
  Country: IT (occurrence: IT)
  Receive Date: 20130613
  Receipt Date: 20130613
  Transmission Date: 20140414
  Serious: Yes (Death)
  Sender: FDA-Public Use
  Company Number: IT-CELGENEUS-083-21880-13060400

PATIENT
  Age: 50 Year
  Sex: Female

DRUGS (2)
  1. REVLIMID [Suspect]
     Indication: PLASMA CELL MYELOMA
     Route: 048
     Dates: start: 20130203, end: 20130302
  2. REVLIMID [Suspect]
     Route: 048
     Dates: start: 20130319, end: 20130507

REACTIONS (2)
  - Death [Fatal]
  - Thrombocytopenia [Unknown]
